FAERS Safety Report 10526006 (Version 2)
Quarter: 2014Q4

REPORT INFORMATION
  Report Type: Spontaneous
  Country: US (occurrence: US)
  Receive Date: 20141017
  Receipt Date: 20141029
  Transmission Date: 20150528
  Serious: Yes (Hospitalization)
  Sender: FDA-Public Use
  Company Number: US-LUNDBECK-DKLU1104378

PATIENT
  Age: 9 Month
  Sex: Male

DRUGS (3)
  1. SABRIL [Suspect]
     Active Substance: VIGABATRIN
     Indication: INFANTILE SPASMS
     Route: 048
     Dates: start: 20140912
  2. PREDNISONE. [Concomitant]
     Active Substance: PREDNISONE
     Indication: INFANTILE SPASMS
  3. SABRIL [Suspect]
     Active Substance: VIGABATRIN
     Dosage: TAPERED
     Route: 048
     Dates: end: 20141003

REACTIONS (1)
  - Infantile spasms [Recovering/Resolving]

NARRATIVE: CASE EVENT DATE: 20140930
